FAERS Safety Report 4379965-2 (Version None)
Quarter: 2004Q2

REPORT INFORMATION
  Report Type: 
  Country: None (occurrence: None)
  Receive Date: 20040614
  Receipt Date: 20040602
  Transmission Date: 20050107
  Serious: Yes (Other)
  Sender: FDA-Public Use
  Company Number: EMADSS2003000947

PATIENT
  Age: 85 Year
  Sex: Female

DRUGS (2)
  1. RISPERDAL [Suspect]
     Indication: PSYCHOTIC DISORDER
     Dosage: 0.25 MG, ORAL
     Route: 048
     Dates: start: 20021217, end: 20030121
  2. FRUSENE (FURESIS COMP) [Concomitant]

REACTIONS (2)
  - ELECTROCARDIOGRAM QT PROLONGED [None]
  - EXTRAPYRAMIDAL DISORDER [None]
